FAERS Safety Report 26005509 (Version 1)
Quarter: 2025Q4

REPORT INFORMATION
  Report Type: Spontaneous
  Country: EU (occurrence: EU)
  Receive Date: 20251106
  Receipt Date: 20251106
  Transmission Date: 20260117
  Serious: Yes (Death, Other)
  Sender: ALEXION PHARMACEUTICALS
  Company Number: EU-ASTRAZENECA-202511GLO001385IT

PATIENT
  Age: 77 Year
  Sex: Female

DRUGS (1)
  1. DURVALUMAB [Suspect]
     Active Substance: DURVALUMAB
     Indication: Gallbladder cancer metastatic
     Dosage: UNK
     Route: 065

REACTIONS (21)
  - Metastatic neoplasm [Fatal]
  - General physical health deterioration [Fatal]
  - Malignant hypertension [Not Recovered/Not Resolved]
  - Retinopathy hypertensive [Not Recovered/Not Resolved]
  - Hypoventilation [Unknown]
  - Biliary dilatation [Unknown]
  - Scleroderma renal crisis [Not Recovered/Not Resolved]
  - Haemolysis [Not Recovered/Not Resolved]
  - Hepatitis [Recovering/Resolving]
  - Nephritis [Not Recovered/Not Resolved]
  - Thrombocytopenia [Not Recovered/Not Resolved]
  - Thrombotic microangiopathy [Not Recovered/Not Resolved]
  - Cyanosis [Unknown]
  - Dyspnoea [Unknown]
  - Arthralgia [Recovering/Resolving]
  - Pleural effusion [Recovering/Resolving]
  - Oedema [Unknown]
  - Myositis [Recovering/Resolving]
  - Weight increased [Recovering/Resolving]
  - Neoplasm progression [Unknown]
  - Peripheral ischaemia [Unknown]
